FAERS Safety Report 15532885 (Version 1)
Quarter: 2018Q4

REPORT INFORMATION
  Report Type: Spontaneous
  Country: US (occurrence: US)
  Receive Date: 20181019
  Receipt Date: 20181019
  Transmission Date: 20190205
  Serious: Yes (Other)
  Sender: FDA-Public Use
  Company Number: CN-ASTRAZENECA-2018SF37210

PATIENT
  Age: 78 Year
  Sex: Female
  Weight: 70.8 kg

DRUGS (1)
  1. NEXIUM 24HR [Suspect]
     Active Substance: ESOMEPRAZOLE MAGNESIUM
     Dosage: UNK, 2X/DAY, (ONE IN THE MORNING AND ONE AT NIGHT)
     Route: 048

REACTIONS (3)
  - Pulmonary mass [Unknown]
  - Weight increased [Unknown]
  - Inappropriate schedule of product administration [Unknown]
